FAERS Safety Report 8003884-3 (Version None)
Quarter: 2011Q4

REPORT INFORMATION
  Report Type: 
  Country: None (occurrence: None)
  Receive Date: 20111222
  Receipt Date: 20111220
  Transmission Date: 20120403
  Serious: Yes (Other)
  Sender: FDA-Public Use
  Company Number: US-PFIZER INC-2011309286

PATIENT
  Sex: Female
  Weight: 71.655 kg

DRUGS (4)
  1. EFFEXOR XR [Suspect]
     Indication: ANXIETY DISORDER
     Dosage: 37.5 MG, 2X/DAY
     Route: 048
  2. EFFEXOR XR [Suspect]
     Dosage: 150 MG, FREQUENCY UNSPECIFIED
     Route: 048
     Dates: end: 20111218
  3. CLONAZEPAM [Concomitant]
     Indication: ANXIETY DISORDER
     Dosage: UNK
  4. EFFEXOR XR [Suspect]
     Indication: DEPRESSION
     Dosage: 75 MG, FREQUENCY UNSPECIFIED
     Route: 048
     Dates: end: 20111218

REACTIONS (4)
  - DIZZINESS [None]
  - FEELING ABNORMAL [None]
  - WITHDRAWAL SYNDROME [None]
  - DISSOCIATION [None]
